FAERS Safety Report 9378537 (Version 1)
Quarter: 2013Q3

REPORT INFORMATION
  Report Type: Spontaneous
  Country: US (occurrence: US)
  Receive Date: 20130702
  Receipt Date: 20130702
  Transmission Date: 20140515
  Serious: No
  Sender: FDA-Public Use
  Company Number: US-009507513-1306USA011901

PATIENT
  Age: 21 Year
  Sex: Female
  Weight: 68.93 kg

DRUGS (1)
  1. IMPLANON [Suspect]
     Indication: CONTRACEPTION
     Dosage: 1 ROD, THREE YEARS THERAPY
     Route: 059
     Dates: start: 201303

REACTIONS (6)
  - Thyroid neoplasm [Not Recovered/Not Resolved]
  - Cervical cyst [Not Recovered/Not Resolved]
  - Stress [Not Recovered/Not Resolved]
  - Depression [Not Recovered/Not Resolved]
  - Choking [Not Recovered/Not Resolved]
  - Dysmenorrhoea [Not Recovered/Not Resolved]
